FAERS Safety Report 15340756 (Version 2)
Quarter: 2018Q4

REPORT INFORMATION
  Report Type: Spontaneous
  Country: US (occurrence: US)
  Receive Date: 20180831
  Receipt Date: 20181112
  Transmission Date: 20190204
  Serious: Yes (Other)
  Sender: FDA-Public Use
  Company Number: US-SA-2018SA238055

PATIENT
  Age: 58 Year
  Sex: Female
  Weight: 72.57 kg

DRUGS (17)
  1. TAXOTERE [Suspect]
     Active Substance: DOCETAXEL
     Indication: BREAST CANCER
     Dosage: 130-140
     Route: 042
     Dates: start: 20091229, end: 20091229
  2. AMARYL [Concomitant]
     Active Substance: GLIMEPIRIDE
     Dosage: UNK
     Dates: start: 2004, end: 2007
  3. CYCLOBENZAPRINE. [Concomitant]
     Active Substance: CYCLOBENZAPRINE
  4. PROCHLORPERAZINE. [Concomitant]
     Active Substance: PROCHLORPERAZINE
  5. HERCEPTIN [Concomitant]
     Active Substance: TRASTUZUMAB
  6. AVALIDE [Concomitant]
     Active Substance: HYDROCHLOROTHIAZIDE\IRBESARTAN
     Dosage: UNK
     Dates: start: 2002
  7. METFORMIN [Concomitant]
     Active Substance: METFORMIN HYDROCHLORIDE
     Dosage: UNK
     Dates: start: 2005, end: 2007
  8. TAXOTERE [Suspect]
     Active Substance: DOCETAXEL
     Dosage: 130-140
     Route: 042
     Dates: start: 20100510, end: 20100510
  9. FORTAMET [Concomitant]
     Active Substance: METFORMIN HYDROCHLORIDE
     Dosage: UNK
     Dates: start: 2008, end: 2010
  10. PARAPLATIN [Concomitant]
     Active Substance: CARBOPLATIN
  11. HYDROCODONE [Concomitant]
     Active Substance: HYDROCODONE
     Dosage: UNK
     Dates: start: 20091110, end: 2010
  12. PRANDIN [REPAGLINIDE] [Concomitant]
  13. GLYSET [GLIMEPIRIDE] [Concomitant]
     Dosage: UNK
     Dates: start: 2002, end: 2003
  14. AVANDIA [Concomitant]
     Active Substance: ROSIGLITAZONE MALEATE
     Dosage: UNK
     Dates: start: 2002, end: 2007
  15. MICARDIS [Concomitant]
     Active Substance: TELMISARTAN
     Dosage: UNK
     Dates: start: 2009, end: 2010
  16. STARLIX [Concomitant]
     Active Substance: NATEGLINIDE
     Dosage: UNK
     Dates: start: 2007, end: 2008
  17. DECADRON [DEXAMETHASONE] [Concomitant]

REACTIONS (2)
  - Alopecia [Recovering/Resolving]
  - Psychological trauma [Unknown]

NARRATIVE: CASE EVENT DATE: 201002
